FAERS Safety Report 5952799-0 (Version None)
Quarter: 2008Q4

REPORT INFORMATION
  Report Type: 
  Country: None (occurrence: None)
  Receive Date: 20081114
  Receipt Date: 20081110
  Transmission Date: 20090506
  Serious: Yes (Death)
  Sender: FDA-Public Use
  Company Number: DE-JNJFOC-20081101833

PATIENT
  Age: 88 Year
  Sex: Female

DRUGS (9)
  1. HALDOL [Suspect]
     Route: 048
  2. HALDOL [Suspect]
     Route: 048
  3. HALDOL [Suspect]
     Indication: DRUG USE FOR UNKNOWN INDICATION
     Route: 048
  4. LORAZEPAM [Concomitant]
     Route: 048
  5. LORAZEPAM [Concomitant]
     Route: 048
  6. MIRTAZAPINE [Concomitant]
     Route: 048
  7. OMEPRAZOLE [Concomitant]
     Route: 048
  8. DIGITOXIN INJ [Concomitant]
     Route: 048
  9. ATACAND [Concomitant]
     Route: 048

REACTIONS (3)
  - APNOEA [None]
  - PULMONARY OEDEMA [None]
  - PULSE ABSENT [None]
